FAERS Safety Report 12264129 (Version 1)
Quarter: 2016Q2

REPORT INFORMATION
  Report Type: Spontaneous
  Country: US (occurrence: US)
  Receive Date: 20160413
  Receipt Date: 20160413
  Transmission Date: 20160815
  Serious: No
  Sender: FDA-Public Use
  Company Number: US-JNJFOC-20160323539

PATIENT
  Age: 57 Year
  Sex: Female
  Weight: 52.62 kg

DRUGS (2)
  1. IBUPROFEN. [Suspect]
     Active Substance: IBUPROFEN
     Route: 048
  2. IBUPROFEN. [Suspect]
     Active Substance: IBUPROFEN
     Indication: LIP SWELLING
     Route: 048
     Dates: start: 20160322

REACTIONS (2)
  - Off label use [Unknown]
  - Product use issue [Unknown]
